FAERS Safety Report 19003694 (Version 1)
Quarter: 2021Q1

REPORT INFORMATION
  Report Type: Spontaneous
  Country: DE (occurrence: DE)
  Receive Date: 20210312
  Receipt Date: 20210312
  Transmission Date: 20210420
  Serious: Yes (Death, Life-Threatening, Hospitalization)
  Sender: FDA-Public Use
  Company Number: DE-TEVA-2021-DE-1887357

PATIENT
  Age: 73 Year
  Sex: Female

DRUGS (14)
  1. CANDESARTAN/HYDROCHLOROTHIAZID [Concomitant]
     Active Substance: CANDESARTAN CILEXETIL\HYDROCHLOROTHIAZIDE
     Dosage: .5 DOSAGE FORMS DAILY; 32|25 MG, 0.5?0?0?0,
     Route: 048
  2. INSULIN GLULISIN [Concomitant]
     Active Substance: INSULIN GLULISINE
     Route: 058
  3. TOLPERISON [Concomitant]
     Active Substance: TOLPERISONE HYDROCHLORIDE
     Dosage: 50 MG, IF NECESSARY,
     Route: 048
  4. ATORVASTATIN [Concomitant]
     Active Substance: ATORVASTATIN
     Dosage: 40 MILLIGRAM DAILY;   0?0?1?0
     Route: 048
  5. INSULIN GLARGIN [Concomitant]
     Active Substance: INSULIN GLARGINE
     Route: 058
  6. METOPROLOL. [Concomitant]
     Active Substance: METOPROLOL
     Dosage: 1 DOSAGE FORMS DAILY; 100 MG, 0.5?0?0.5?0
     Route: 048
  7. SPIRONOLACTON [Concomitant]
     Active Substance: SPIRONOLACTONE
     Dosage: 50 MILLIGRAM DAILY;  1?0?0?0,
     Route: 048
  8. PRAMIPEXOL [Concomitant]
     Active Substance: PRAMIPEXOLE
     Dosage: .35 MILLIGRAM DAILY;  0?0?1?0
     Route: 048
  9. CYCLOPHOSPHAMID [Suspect]
     Active Substance: CYCLOPHOSPHAMIDE
     Dosage: LAST 11092020
     Route: 065
  10. EPIRUBICIN [Suspect]
     Active Substance: EPIRUBICIN
     Dosage: LAST 11092020
     Route: 065
  11. LEVOTHYROXIN?NATRIUM [Concomitant]
     Active Substance: LEVOTHYROXINE SODIUM
     Dosage: 75 MICROGRAM DAILY;   1?0?0?0,
     Route: 048
  12. LERCANIDIPIN [Concomitant]
     Active Substance: LERCANIDIPINE
     Dosage: 10 MILLIGRAM DAILY;  1?0?0?0
     Route: 048
  13. SITAGLIPTIN [Concomitant]
     Active Substance: SITAGLIPTIN
     Dosage: 50 MILLIGRAM DAILY;  1?0?0?0
     Route: 048
  14. ACETYLSALICYLSAEURE [Concomitant]
     Active Substance: ASPIRIN
     Dosage: 100 MILLIGRAM DAILY; 1?0?0?0
     Route: 048

REACTIONS (7)
  - Acute respiratory failure [Unknown]
  - Wheezing [Unknown]
  - Dyspnoea [Unknown]
  - Tachycardia [Unknown]
  - Condition aggravated [Unknown]
  - General physical health deterioration [Unknown]
  - Fatigue [Unknown]
